FAERS Safety Report 14646348 (Version 4)
Quarter: 2021Q1

REPORT INFORMATION
  Report Type: Report from Study
  Country: IL (occurrence: IL)
  Receive Date: 20180316
  Receipt Date: 20210301
  Transmission Date: 20210419
  Serious: Yes (Hospitalization)
  Sender: FDA-Public Use
  Company Number: IL-ORPHAN EUROPE-2043884

PATIENT
  Age: 20 Year
  Sex: Male
  Weight: 30 kg

DRUGS (4)
  1. CARBAGLU [Suspect]
     Active Substance: CARGLUMIC ACID
  2. CARBAGLU [Suspect]
     Active Substance: CARGLUMIC ACID
  3. CARBAGLU [Suspect]
     Active Substance: CARGLUMIC ACID
     Indication: N-ACETYLGLUTAMATE SYNTHASE DEFICIENCY
  4. CARBAGLU [Suspect]
     Active Substance: CARGLUMIC ACID
     Dates: start: 20200519

REACTIONS (5)
  - Hypothermia [Unknown]
  - Feeling abnormal [Unknown]
  - Productive cough [Not Recovered/Not Resolved]
  - Altered state of consciousness [Not Recovered/Not Resolved]
  - Urinary retention [Not Recovered/Not Resolved]

NARRATIVE: CASE EVENT DATE: 20210107
